FAERS Safety Report 4975312-3 (Version None)
Quarter: 2006Q2

REPORT INFORMATION
  Report Type: 
  Country: None (occurrence: None)
  Receive Date: 20060417
  Receipt Date: 20060417
  Transmission Date: 20061013
  Serious: Yes (Hospitalization)
  Sender: FDA-Public Use
  Company Number: None

PATIENT
  Sex: Male
  Weight: 123.9 kg

DRUGS (10)
  1. GEFITINIB  250 MG TAB, ASTRAZENECA [Suspect]
     Indication: GLIOBLASTOMA MULTIFORME
     Dosage: 500 MG PO QD
     Route: 048
     Dates: start: 20050126
  2. RAPAMUNE [Suspect]
     Indication: GLIOBLASTOMA MULTIFORME
     Dosage: 10 MG PO , QD
     Route: 048
     Dates: start: 20050126
  3. AVALIDE [Concomitant]
  4. DECADRON [Concomitant]
  5. KEPPRA [Concomitant]
  6. PEPCID [Concomitant]
  7. LOVENOX [Concomitant]
  8. MAGIC MOUTHWASH [Concomitant]
  9. PHENERGAN HCL [Concomitant]
  10. ZOFRAN [Concomitant]

REACTIONS (7)
  - COUGH [None]
  - DRUG TOXICITY [None]
  - DYSPNOEA [None]
  - LUNG INFILTRATION [None]
  - OXYGEN SATURATION DECREASED [None]
  - PNEUMOCYSTIS JIROVECI PNEUMONIA [None]
  - PNEUMONIA [None]
